FAERS Safety Report 14006139 (Version 1)
Quarter: 2017Q3

REPORT INFORMATION
  Report Type: Report from Study
  Country: GB (occurrence: GB)
  Receive Date: 20170924
  Receipt Date: 20170924
  Transmission Date: 20171128
  Serious: Yes (Hospitalization)
  Sender: FDA-Public Use
  Company Number: GB-VERTEX PHARMACEUTICALS-2017-005202

PATIENT
  Age: 1 Year
  Sex: Female
  Weight: 10.3 kg

DRUGS (9)
  1. AQUADEKS [Concomitant]
     Active Substance: MINERALS\VITAMINS
     Indication: PANCREATIC FAILURE
     Dosage: 1 DOSAGE FORM, QD
     Route: 048
     Dates: start: 201605
  2. OMEPRAZOLE. [Concomitant]
     Active Substance: OMEPRAZOLE
     Indication: GASTROOESOPHAGEAL REFLUX DISEASE
     Dosage: 10 MG, QD
     Route: 048
     Dates: start: 201605
  3. DIPROBASE [Concomitant]
     Active Substance: CHLOROCRESOL
     Indication: ECZEMA
     Dosage: 1 DOSAGE FORM, QD
     Route: 061
     Dates: start: 20160616
  4. SODIUM CHLORIDE. [Concomitant]
     Active Substance: SODIUM CHLORIDE
     Indication: CYSTIC FIBROSIS
     Dosage: 20 MILLIMOLE, QD
     Dates: start: 201605
  5. LACTULOSE. [Concomitant]
     Active Substance: LACTULOSE
     Indication: CONSTIPATION
     Dosage: 2.5 MILLILITER, BID
     Dates: start: 20160721
  6. DOMPERIDONE [Concomitant]
     Active Substance: DOMPERIDONE
     Indication: CONSTIPATION
     Dosage: 2.8 MILLILITER, TID
     Dates: start: 20160721
  7. VX-770 [Suspect]
     Active Substance: IVACAFTOR
     Dosage: 50 MG, UNK
     Route: 048
     Dates: start: 20170516
  8. CREON [Concomitant]
     Active Substance: PANCRELIPASE AMYLASE\PANCRELIPASE LIPASE\PANCRELIPASE PROTEASE
     Indication: PANCREATIC FAILURE
     Dosage: UNK
     Dates: start: 2016
  9. FLUCLOXACILLIN [Concomitant]
     Active Substance: FLUCLOXACILLIN
     Indication: PROPHYLAXIS
     Dosage: 5 MILLILITER, BID
     Dates: start: 20160626

REACTIONS (1)
  - Constipation [Recovered/Resolved]

NARRATIVE: CASE EVENT DATE: 20170803
